FAERS Safety Report 8373361-9 (Version None)
Quarter: 2012Q2

REPORT INFORMATION
  Report Type: 
  Country: None (occurrence: None)
  Receive Date: 20120521
  Receipt Date: 20120507
  Transmission Date: 20120825
  Serious: Yes (Hospitalization)
  Sender: FDA-Public Use
  Company Number: US-ELI_LILLY_AND_COMPANY-US201205002974

PATIENT
  Age: 55 Year
  Sex: Female

DRUGS (6)
  1. DEXAMETHASONE [Concomitant]
     Dosage: 2 MG, QOD
     Route: 048
  2. OLANZAPINE [Suspect]
     Dosage: 5 MG, QD
  3. LORAZEPAM [Concomitant]
     Dosage: 1 MG, PRN
  4. VINORELBINE [Concomitant]
  5. DEXAMETHASONE [Concomitant]
     Dosage: 4 MG, BID
  6. TRASTUZUMAB [Concomitant]

REACTIONS (3)
  - PSYCHIATRIC SYMPTOM [None]
  - SEDATION [None]
  - INTENTIONAL DRUG MISUSE [None]
